FAERS Safety Report 4304513-2 (Version None)
Quarter: 2004Q1

REPORT INFORMATION
  Report Type: 
  Country: None (occurrence: None)
  Receive Date: 20040224
  Receipt Date: 20040216
  Transmission Date: 20041129
  Serious: Yes (Other)
  Sender: FDA-Public Use
  Company Number: DE-JNJFOC-20040203531

PATIENT
  Age: 76 Year
  Sex: Male

DRUGS (1)
  1. DUROGESIC (FENTANYL) PATCH [Suspect]
     Indication: PAIN
     Dosage: 25 UG/HR, 1 IN 72 HOUR, TRANSDERMAL
     Route: 062

REACTIONS (4)
  - ABNORMAL BEHAVIOUR [None]
  - EYE MOVEMENT DISORDER [None]
  - SOMNOLENCE [None]
  - TREMOR [None]
